FAERS Safety Report 4273811-3 (Version None)
Quarter: 2004Q1

REPORT INFORMATION
  Report Type: 
  Country: None (occurrence: None)
  Receive Date: 20040115
  Receipt Date: 20031230
  Transmission Date: 20041129
  Serious: Yes (Hospitalization)
  Sender: FDA-Public Use
  Company Number: 179121

PATIENT
  Age: 49 Year
  Sex: Female
  Weight: 53.978 kg

DRUGS (5)
  1. AVONEX [Suspect]
     Indication: MULTIPLE SCLEROSIS
     Dosage: 30 MCG QW IM
     Route: 030
     Dates: start: 20021212
  2. FOLIC ACID [Concomitant]
  3. AMANTADINE HCL [Concomitant]
  4. METHOTREXATE [Concomitant]
  5. BACLOFEN [Concomitant]

REACTIONS (4)
  - CONSTIPATION [None]
  - CYSTITIS [None]
  - MULTIPLE SCLEROSIS RELAPSE [None]
  - RENAL PAIN [None]
